FAERS Safety Report 16245395 (Version 1)
Quarter: 2019Q2

REPORT INFORMATION
  Report Type: Spontaneous
  Country: US (occurrence: US)
  Receive Date: 20190426
  Receipt Date: 20190426
  Transmission Date: 20190711
  Serious: Yes (Other)
  Sender: FDA-Public Use
  Company Number: US-BRACCO-2019US01991

PATIENT
  Sex: Female

DRUGS (3)
  1. PROHANCE [Suspect]
     Active Substance: GADOTERIDOL
     Indication: NUCLEAR MAGNETIC RESONANCE IMAGING ABDOMINAL
     Dosage: 20 ML, SINGLE
     Route: 042
     Dates: start: 20190211, end: 20190211
  2. VITAMIN D                          /00107901/ [Concomitant]
     Active Substance: ERGOCALCIFEROL
     Dosage: UNK
  3. CALCIUM [Concomitant]
     Active Substance: CALCIUM
     Dosage: UNK

REACTIONS (6)
  - Asthenia [Recovering/Resolving]
  - Fine motor skill dysfunction [Recovering/Resolving]
  - Mental impairment [Recovered/Resolved]
  - Urine analysis abnormal [Unknown]
  - Paraesthesia [Recovering/Resolving]
  - Peripheral swelling [Recovering/Resolving]
